FAERS Safety Report 11626679 (Version 3)
Quarter: 2017Q1

REPORT INFORMATION
  Report Type: Spontaneous
  Country: US (occurrence: US)
  Receive Date: 20151013
  Receipt Date: 20170216
  Transmission Date: 20170428
  Serious: Yes (Other)
  Sender: FDA-Public Use
  Company Number: US-TEVA-599760USA

PATIENT
  Age: 74 Year
  Sex: Male

DRUGS (10)
  1. SULFASALAZINE. [Concomitant]
     Active Substance: SULFASALAZINE
  2. NUVIGIL [Concomitant]
     Active Substance: ARMODAFINIL
  3. ZANTAC [Concomitant]
     Active Substance: RANITIDINE HYDROCHLORIDE
  4. LEVODOPA-CARBIDOPA [Concomitant]
     Active Substance: CARBIDOPA\LEVODOPA
  5. CYMBALTA [Concomitant]
     Active Substance: DULOXETINE HYDROCHLORIDE
  6. AZILECT [Suspect]
     Active Substance: RASAGILINE MESYLATE
     Indication: PARKINSON^S DISEASE
     Dates: start: 2003, end: 2004
  7. PROTONIX [Concomitant]
     Active Substance: PANTOPRAZOLE SODIUM
  8. FLOMAX [Concomitant]
     Active Substance: TAMSULOSIN HYDROCHLORIDE
  9. MIRAPEX [Concomitant]
     Active Substance: PRAMIPEXOLE DIHYDROCHLORIDE
  10. LYRICA [Concomitant]
     Active Substance: PREGABALIN

REACTIONS (21)
  - Vision blurred [Unknown]
  - Somnolence [Unknown]
  - Visual impairment [Unknown]
  - Sleep disorder [Unknown]
  - Hypotension [Unknown]
  - Hyperhidrosis [Unknown]
  - Head injury [Unknown]
  - Sleep apnoea syndrome [Unknown]
  - Fall [Unknown]
  - Body temperature increased [Unknown]
  - Weight decreased [Unknown]
  - Corneal disorder [Unknown]
  - Pain in extremity [Unknown]
  - Hypertension [Unknown]
  - Dizziness [Unknown]
  - Parkinson^s disease [Unknown]
  - Syncope [Unknown]
  - Vertigo [Unknown]
  - Lipoma [Unknown]
  - Wrong technique in product usage process [Unknown]
  - Adverse event [Unknown]

NARRATIVE: CASE EVENT DATE: 2003
